FAERS Safety Report 22591812 (Version 1)
Quarter: 2023Q2

REPORT INFORMATION
  Report Type: Spontaneous
  Country: US (occurrence: US)
  Receive Date: 20230612
  Receipt Date: 20230612
  Transmission Date: 20230722
  Serious: No
  Sender: FDA-Public Use
  Company Number: US-RIGEL Pharmaceuticals, INC-2023FOS000153

PATIENT
  Sex: Female
  Weight: 94.966 kg

DRUGS (2)
  1. TAVALISSE [Suspect]
     Active Substance: FOSTAMATINIB
     Indication: Immune thrombocytopenia
     Dosage: 150 MG IN THE MORNING, 100 MG IN THE EVENING
     Route: 048
     Dates: start: 20201221
  2. TAVALISSE [Suspect]
     Active Substance: FOSTAMATINIB
     Dosage: 150 MG IN THE MORNING, 100 MG IN THE EVENING
     Route: 048
     Dates: start: 20201221

REACTIONS (6)
  - Fall [Unknown]
  - Contusion [Unknown]
  - Pain [Unknown]
  - Pruritus [Unknown]
  - Platelet count [Unknown]
  - Product prescribing issue [Unknown]
